FAERS Safety Report 9064885 (Version 2)
Quarter: 2013Q1

REPORT INFORMATION
  Report Type: Spontaneous
  Country: JP (occurrence: JP)
  Receive Date: 20130206
  Receipt Date: 20130227
  Transmission Date: 20140127
  Serious: Yes (Hospitalization, Other)
  Sender: FDA-Public Use
  Company Number: JP-BRISTOL-MYERS SQUIBB COMPANY-17352519

PATIENT
  Age: 31 Year
  Sex: Female
  Weight: 65 kg

DRUGS (9)
  1. ABILIFY TABS [Suspect]
     Dosage: SINGLE
     Route: 048
     Dates: end: 20130126
  2. RESLIN [Suspect]
     Dosage: SINGLE
     Route: 048
     Dates: end: 20130126
  3. DEPAS [Suspect]
     Dosage: SINGLE
     Route: 048
     Dates: end: 20130126
  4. WYPAX [Suspect]
     Dosage: SINGLE
     Route: 048
     Dates: end: 20130126
  5. SOLANAX [Suspect]
     Dosage: SINGLE
     Route: 048
     Dates: end: 20130126
  6. MEILAX [Suspect]
     Dosage: SINGLE
     Route: 048
     Dates: end: 20130126
  7. HALCION [Suspect]
     Dosage: SINGLE
     Route: 048
     Dates: end: 20130126
  8. ROHYPNOL [Suspect]
     Dosage: SINGLE
     Route: 048
     Dates: end: 20130126
  9. ZYPREXA [Suspect]
     Dosage: SINGLE
     Route: 048
     Dates: end: 20130126

REACTIONS (1)
  - Overdose [Unknown]
